FAERS Safety Report 8246772-X (Version None)
Quarter: 2012Q1

REPORT INFORMATION
  Report Type: 
  Country: None (occurrence: None)
  Receive Date: 20120330
  Receipt Date: 20120327
  Transmission Date: 20120608
  Serious: Yes (Other)
  Sender: FDA-Public Use
  Company Number: FR-PFIZER INC-2012073051

PATIENT
  Sex: Female

DRUGS (17)
  1. COLIMYCINE [Suspect]
     Dosage: UNK
     Route: 064
  2. PRAVASTATIN [Suspect]
     Indication: DYSLIPIDAEMIA
     Dosage: 10 MG, 1X/DAY
     Route: 064
  3. STEROGYL [Concomitant]
     Indication: OSTEOPOROSIS
     Dosage: 5 GTT DAILY
     Route: 064
  4. IMURAN [Suspect]
     Dosage: 50 MG, 1X/DAY
     Route: 064
  5. MUCOMYST [Suspect]
     Dosage: 600 MG, 3X/DAY
     Route: 064
  6. CALCIUM CARBONATE [Concomitant]
     Dosage: 600 MG, 2X/DAY
     Route: 064
  7. TOCO [Concomitant]
     Route: 064
  8. ASPEGIC 1000 [Concomitant]
     Dosage: UNK
     Dates: end: 20110621
  9. TACROLIMUS [Suspect]
     Dosage: UNK
     Route: 064
  10. ASPIRIN [Suspect]
     Dosage: 75 MG, 1X/DAY
     Route: 064
  11. INSULATARD NPH HUMAN [Suspect]
     Indication: DIABETES MELLITUS
     Dosage: 8 IU IN THE MORNING AND 4 IU IN THE EVENING
     Route: 064
  12. URSOLVAN-200 [Concomitant]
     Dosage: 2 DF DAILY
     Route: 064
  13. PREDNISONE TAB [Suspect]
     Dosage: 6 MG DAILY
     Route: 064
  14. TACROLIMUS [Suspect]
     Dosage: 12 MG DAILY
     Route: 064
     Dates: start: 20110520
  15. CREON [Concomitant]
     Dosage: 15 CAPSULES DAILY
     Route: 064
  16. TRANDATE [Suspect]
     Indication: HYPERTENSION
     Dosage: 100 MG DAILY
     Route: 064
  17. AMLODIPINE BESYLATE [Suspect]
     Indication: HYPERTENSION
     Dosage: 5 MG, 1X/DAY
     Route: 064

REACTIONS (2)
  - FOETAL GROWTH RESTRICTION [None]
  - MATERNAL EXPOSURE TIMING UNSPECIFIED [None]
